FAERS Safety Report 11329412 (Version 4)
Quarter: 2015Q3

REPORT INFORMATION
  Report Type: Report from Study
  Country: TW (occurrence: TW)
  Receive Date: 20150803
  Receipt Date: 20150909
  Transmission Date: 20151125
  Serious: Yes (Hospitalization)
  Sender: FDA-Public Use
  Company Number: TW-ABBVIE-15K-153-1433631-00

PATIENT
  Age: 29 Year
  Sex: Male
  Weight: 50.2 kg

DRUGS (5)
  1. PREDNISOLONE. [Concomitant]
     Active Substance: PREDNISOLONE
     Indication: PRODUCT USED FOR UNKNOWN INDICATION
     Dosage: 10-40 MG
     Dates: start: 201505, end: 201509
  2. AZATHIOPRINE. [Concomitant]
     Active Substance: AZATHIOPRINE
     Indication: PRODUCT USED FOR UNKNOWN INDICATION
     Dosage: 25-75 MG
     Dates: start: 201505, end: 201506
  3. CATILON [Concomitant]
     Indication: CROHN^S DISEASE
     Route: 048
     Dates: start: 20140701
  4. METHOTREXATE [Concomitant]
     Active Substance: METHOTREXATE
     Indication: PRODUCT USED FOR UNKNOWN INDICATION
     Dates: start: 201508, end: 201509
  5. HUMIRA [Suspect]
     Active Substance: ADALIMUMAB
     Indication: CROHN^S DISEASE
     Route: 058
     Dates: start: 20150623, end: 20150708

REACTIONS (8)
  - Abdominal pain [Not Recovered/Not Resolved]
  - Diarrhoea [Not Recovered/Not Resolved]
  - Hepatic steatosis [Unknown]
  - Fibrosis [Unknown]
  - Pyrexia [Recovered/Resolved]
  - Cholelithiasis [Unknown]
  - Inferior vena cava syndrome [Unknown]
  - Colitis [Unknown]

NARRATIVE: CASE EVENT DATE: 2015
